FAERS Safety Report 9759294 (Version 1)
Quarter: 2013Q4

REPORT INFORMATION
  Report Type: Spontaneous
  Country: US (occurrence: None)
  Receive Date: 20131216
  Receipt Date: 20131216
  Transmission Date: 20140711
  Serious: Yes (Other)
  Sender: FDA-Public Use
  Company Number: 163-21880-12052276(0)

PATIENT
  Age: 75 Year
  Sex: Female
  Weight: 95 kg

DRUGS (1)
  1. REVLIMID (LENALIDOMIDE) (CAPSULES) [Suspect]
     Indication: MYELODYSPLASTIC SYNDROME
     Dosage: 10 MG, 1 IN 1 D, PO?5 MG, 28 IN 28 D, PO? ? ? ? ? ? ? ? ?

REACTIONS (12)
  - Platelet count decreased [None]
  - Red blood cell count decreased [None]
  - White blood cell count decreased [None]
  - Haemoglobin decreased [None]
  - Neutrophil count decreased [None]
  - Haematocrit decreased [None]
  - Dyspnoea [None]
  - Increased tendency to bruise [None]
  - Contusion [None]
  - Blood potassium decreased [None]
  - Oedema [None]
  - Fatigue [None]
